FAERS Safety Report 4972112-5 (Version None)
Quarter: 2006Q2

REPORT INFORMATION
  Report Type: 
  Country: None (occurrence: None)
  Receive Date: 20060413
  Receipt Date: 20060215
  Transmission Date: 20061013
  Serious: Yes (Death)
  Sender: FDA-Public Use
  Company Number: JP-SANOFI-SYNTHELABO-A01200601390

PATIENT
  Age: 82 Year
  Sex: Male
  Weight: 56 kg

DRUGS (13)
  1. OXALIPLATIN [Suspect]
     Indication: RECTAL CANCER
     Route: 041
     Dates: start: 20060209, end: 20060209
  2. FLUOROURACIL [Suspect]
     Dosage: 450MG/BODY IN BOLUS THEN 650MG/BODY AS CONTINUOUS INFUSION ON DAYS 1 AND 2
     Route: 041
     Dates: start: 20060209, end: 20060209
  3. CALCIUM LEVOFOLINATE [Concomitant]
     Route: 041
     Dates: start: 20060123, end: 20060209
  4. HALCION [Concomitant]
     Route: 048
     Dates: end: 20060215
  5. SPIROPENT [Concomitant]
     Route: 048
     Dates: end: 20060210
  6. SELBEX [Concomitant]
     Route: 048
     Dates: end: 20060215
  7. MAGNESIUM OXIDE [Concomitant]
     Route: 048
     Dates: end: 20060215
  8. LOPEMIN [Concomitant]
     Dosage: 1 DF
     Route: 048
     Dates: end: 20060215
  9. COLIMY C [Concomitant]
     Dosage: IO
     Dates: end: 20060215
  10. HYALEIN [Concomitant]
     Dosage: IO
     Route: 065
     Dates: end: 20060215
  11. BUSCOPAN [Concomitant]
     Dosage: 1DF
     Dates: start: 20060214, end: 20060214
  12. SOSEGON [Concomitant]
     Route: 042
     Dates: start: 20060215, end: 20060215
  13. BOSMIN [Concomitant]
     Dosage: 1DF
     Route: 042
     Dates: start: 20060215

REACTIONS (7)
  - ABDOMINAL ADHESIONS [None]
  - BLOOD PRESSURE DECREASED [None]
  - INTESTINAL OBSTRUCTION [None]
  - METASTASES TO LIVER [None]
  - METASTASES TO LUNG [None]
  - RECTAL STENOSIS [None]
  - RESPIRATORY ARREST [None]
